FAERS Safety Report 15989096 (Version 9)
Quarter: 2020Q2

REPORT INFORMATION
  Report Type: Report from Study
  Country: ES (occurrence: ES)
  Receive Date: 20190221
  Receipt Date: 20200527
  Transmission Date: 20200713
  Serious: Yes (Hospitalization, Other)
  Sender: FDA-Public Use
  Company Number: ES-ROCHE-2266272

PATIENT
  Age: 60 Year
  Sex: Male
  Weight: 79 kg

DRUGS (9)
  1. PARACETAMOL [Concomitant]
     Active Substance: ACETAMINOPHEN
     Route: 065
     Dates: start: 20190416, end: 20190416
  2. BEVACIZUMAB. [Concomitant]
     Active Substance: BEVACIZUMAB
     Route: 065
     Dates: start: 2019
  3. PARACETAMOL [Concomitant]
     Active Substance: ACETAMINOPHEN
     Indication: PREMEDICATION
     Route: 065
     Dates: start: 20190305, end: 20190305
  4. METOCLOPRAMIDE. [Concomitant]
     Active Substance: METOCLOPRAMIDE
     Indication: PREMEDICATION
     Route: 065
     Dates: start: 20190416, end: 20190416
  5. PEMETREXED. [Concomitant]
     Active Substance: PEMETREXED
     Route: 065
     Dates: start: 2019
  6. RO6874281 (FAP IL2V MAB) [Suspect]
     Active Substance: SIMLUKAFUSP ALFA
     Indication: NEOPLASM
     Dosage: DATE OF MOST RECENT RO6874281 ADMINISTERED PRIOR TO ADVERSE EVENT (AE) ONSET: 22/JAN/2019 AT 16:12 A
     Route: 042
     Dates: start: 20190122
  7. CETIRIZINE [Concomitant]
     Active Substance: CETIRIZINE HYDROCHLORIDE
     Indication: PRURITUS
     Route: 065
     Dates: start: 20190212
  8. ATEZOLIZUMAB. [Suspect]
     Active Substance: ATEZOLIZUMAB
     Indication: NEOPLASM
     Dosage: DATE OF MOST RECENT DOSE OF ATEZOLIZUMAB PRIOR TO ADVERSE EVENT (AE) ONSET: 22/JAN/2019 AT 13:07 AND
     Route: 041
     Dates: start: 20190122
  9. IBUPROFEN. [Concomitant]
     Active Substance: IBUPROFEN
     Indication: ASTHENIA
     Route: 065

REACTIONS (2)
  - Medication error [Unknown]
  - Drug-induced liver injury [Recovered/Resolved]

NARRATIVE: CASE EVENT DATE: 20190122
